FAERS Safety Report 8439252-X (Version None)
Quarter: 2012Q2

REPORT INFORMATION
  Report Type: 
  Country: None (occurrence: None)
  Receive Date: 20120615
  Receipt Date: 20120608
  Transmission Date: 20120825
  Serious: Yes (Other)
  Sender: FDA-Public Use
  Company Number: PHHY2012JP049940

PATIENT
  Age: 78 Year
  Sex: Male

DRUGS (3)
  1. FAMOTIDINE [Concomitant]
     Dosage: 20 MG, UNK
     Route: 048
     Dates: start: 20120606
  2. EXELON [Suspect]
     Indication: DEMENTIA ALZHEIMER'S TYPE
     Dosage: 18 MG, DAILY
     Route: 062
  3. SELBEX [Concomitant]
     Dosage: 50 MG, UNK
     Dates: start: 20120606

REACTIONS (3)
  - TRANSIENT ISCHAEMIC ATTACK [None]
  - CONVULSION [None]
  - EPILEPSY [None]
